FAERS Safety Report 9899856 (Version 1)
Quarter: 2014Q1

REPORT INFORMATION
  Report Type: Spontaneous
  Country: JP (occurrence: JP)
  Receive Date: 20140214
  Receipt Date: 20140214
  Transmission Date: 20141002
  Serious: Yes (Other)
  Sender: FDA-Public Use
  Company Number: JP-UCBSA-112344

PATIENT
  Age: 82 Year
  Sex: Male

DRUGS (1)
  1. XYZAL [Suspect]
     Indication: RHINITIS ALLERGIC
     Route: 048
     Dates: start: 20131216, end: 20131220

REACTIONS (1)
  - Toxic skin eruption [Recovered/Resolved]
